FAERS Safety Report 12630330 (Version 4)
Quarter: 2016Q4

REPORT INFORMATION
  Report Type: Spontaneous
  Country: US (occurrence: US)
  Receive Date: 20160808
  Receipt Date: 20161010
  Transmission Date: 20170207
  Serious: Yes (Hospitalization, Other)
  Sender: FDA-Public Use
  Company Number: US-PFIZER INC-2016378097

PATIENT
  Age: 63 Year
  Sex: Female
  Weight: 119.29 kg

DRUGS (5)
  1. LYRICA [Suspect]
     Active Substance: PREGABALIN
     Indication: TYPE 2 DIABETES MELLITUS
     Dosage: 75 MG, 2X/DAY (1 IN THE MORNING AND 1 AT NIGHT)
     Route: 048
  2. CELEBREX [Suspect]
     Active Substance: CELECOXIB
     Indication: INFLAMMATION
     Dosage: 200 MG, 2X/DAY (1 IN THE MORNING AND 1 AT NIGHT)
     Route: 048
  3. METFORMIN [Concomitant]
     Active Substance: METFORMIN HYDROCHLORIDE
     Indication: DIABETES MELLITUS
     Dosage: UNK
  4. LYRICA [Suspect]
     Active Substance: PREGABALIN
     Indication: NEUROPATHY PERIPHERAL
  5. LYRICA [Suspect]
     Active Substance: PREGABALIN
     Indication: BURNING SENSATION
     Dosage: 75 MG, 2X/DAY (1 IN THE MORNING AND 1 AT NIGHT)
     Route: 048

REACTIONS (9)
  - Erythema [Recovered/Resolved]
  - Headache [Not Recovered/Not Resolved]
  - Cataract [Unknown]
  - Hypoaesthesia [Unknown]
  - Cerebrovascular accident [Recovered/Resolved]
  - Arthropathy [Not Recovered/Not Resolved]
  - Myocardial infarction [Recovered/Resolved]
  - Atrial fibrillation [Not Recovered/Not Resolved]
  - Fall [Recovered/Resolved]

NARRATIVE: CASE EVENT DATE: 201606
